FAERS Safety Report 23089176 (Version 1)
Quarter: 2023Q4

REPORT INFORMATION
  Report Type: Spontaneous
  Country: NL (occurrence: NL)
  Receive Date: 20231020
  Receipt Date: 20231020
  Transmission Date: 20240110
  Serious: Yes (Hospitalization, Other)
  Sender: FDA-Public Use
  Company Number: NL-AKCEA THERAPEUTICS, INC.-2023IS002471

PATIENT

DRUGS (1)
  1. TEGSEDI [Suspect]
     Active Substance: INOTERSEN SODIUM
     Indication: Cardiac amyloidosis
     Route: 065

REACTIONS (7)
  - Warm autoimmune haemolytic anaemia [Unknown]
  - Leukopenia [Unknown]
  - Anaemia macrocytic [Unknown]
  - Asthenia [Unknown]
  - Tachycardia [Unknown]
  - Sinus arrhythmia [Unknown]
  - Off label use [Unknown]
